FAERS Safety Report 8619600-8 (Version None)
Quarter: 2012Q3

REPORT INFORMATION
  Report Type: 
  Country: None (occurrence: None)
  Receive Date: 20120824
  Receipt Date: 20110624
  Transmission Date: 20120928
  Serious: Yes (Death, Life-Threatening)
  Sender: FDA-Public Use
  Company Number: BR-GE HEALTHCARE MEDICAL DIAGNOSTICS-OMPQ-PR-1104S-0352

PATIENT
  Sex: Male
  Weight: 0.895 kg

DRUGS (2)
  1. OMNIPAQUE 140 [Suspect]
     Indication: CENTRAL VENOUS CATHETERISATION
     Dosage: 1 ML DILUTED IN 1 ML NORMAL SALINE
     Route: 042
     Dates: start: 20110411, end: 20110411
  2. OMNIPAQUE 140 [Suspect]
     Indication: DIAGNOSTIC PROCEDURE

REACTIONS (2)
  - CARDIO-RESPIRATORY ARREST [None]
  - SHOCK [None]
